FAERS Safety Report 8185672-0 (Version None)
Quarter: 2012Q1

REPORT INFORMATION
  Report Type: 
  Country: None (occurrence: None)
  Receive Date: 20120305
  Receipt Date: 20120223
  Transmission Date: 20120608
  Serious: Yes (Death, Hospitalization, Other)
  Sender: FDA-Public Use
  Company Number: NL-BAXTER-2012BH005558

PATIENT
  Age: 69 Year
  Sex: Male

DRUGS (17)
  1. EXTRANEAL [Suspect]
     Route: 033
     Dates: start: 20110221, end: 20110413
  2. EXTRANEAL [Suspect]
     Route: 033
     Dates: start: 20110416
  3. EXTRANEAL [Suspect]
     Indication: PERITONEAL DIALYSIS
     Route: 033
     Dates: start: 20080929, end: 20110126
  4. EXTRANEAL [Suspect]
     Route: 033
     Dates: start: 20110416
  5. PHYSIOSOL IN PLASTIC CONTAINER [Suspect]
     Route: 033
     Dates: start: 20080929, end: 20110527
  6. VITAMIN D [Concomitant]
     Indication: PRODUCT USED FOR UNKNOWN INDICATION
     Route: 065
  7. BETA BLOCKING AGENTS [Concomitant]
     Indication: PRODUCT USED FOR UNKNOWN INDICATION
     Route: 048
  8. CALCIUM CHANNEL BLOCKERS [Concomitant]
     Indication: PRODUCT USED FOR UNKNOWN INDICATION
     Route: 048
  9. EPOGEN [Concomitant]
     Indication: PRODUCT USED FOR UNKNOWN INDICATION
     Route: 065
  10. PHYSIOSOL IN PLASTIC CONTAINER [Suspect]
     Indication: PERITONEAL DIALYSIS
     Route: 033
     Dates: start: 20080929, end: 20110527
  11. INSULIN [Concomitant]
     Indication: PRODUCT USED FOR UNKNOWN INDICATION
     Route: 065
  12. EXTRANEAL [Suspect]
     Route: 033
     Dates: start: 20110221, end: 20110413
  13. EXTRANEAL [Suspect]
     Route: 033
     Dates: start: 20080929, end: 20110126
  14. ACE INHIBITOR NOS [Concomitant]
     Indication: PRODUCT USED FOR UNKNOWN INDICATION
     Route: 048
  15. NUTRINEAL [Suspect]
     Indication: PERITONEAL DIALYSIS
     Route: 033
     Dates: start: 20080929, end: 20101106
  16. NUTRINEAL [Suspect]
     Route: 033
     Dates: start: 20080929, end: 20101106
  17. IRON [Concomitant]
     Indication: PRODUCT USED FOR UNKNOWN INDICATION
     Route: 042

REACTIONS (3)
  - INFECTIOUS PERITONITIS [None]
  - GASTROINTESTINAL HAEMORRHAGE [None]
  - SEPSIS [None]
